FAERS Safety Report 7595191-8 (Version None)
Quarter: 2011Q3

REPORT INFORMATION
  Report Type: 
  Country: None (occurrence: None)
  Receive Date: 20110707
  Receipt Date: 20110629
  Transmission Date: 20111222
  Serious: Yes (Other)
  Sender: FDA-Public Use
  Company Number: DE-PFIZER INC-2011150118

PATIENT
  Age: 63 Year
  Sex: Male

DRUGS (3)
  1. SIMVASTATIN [Concomitant]
     Dosage: 40 MG/DAY
  2. AMIODARONE HCL [Suspect]
     Indication: ATRIAL FIBRILLATION
     Dosage: 200 MG, 3X/DAY
     Route: 048
     Dates: start: 20110601
  3. MARCUMAR [Concomitant]

REACTIONS (3)
  - BLOOD ALKALINE PHOSPHATASE INCREASED [None]
  - ATRIAL FIBRILLATION [None]
  - DRUG LEVEL DECREASED [None]
